FAERS Safety Report 11339921 (Version 1)
Quarter: 2015Q3

REPORT INFORMATION
  Report Type: Spontaneous
  Country: CN (occurrence: CN)
  Receive Date: 20150805
  Receipt Date: 20150805
  Transmission Date: 20151125
  Serious: Yes (Hospitalization)
  Sender: FDA-Public Use
  Company Number: CN-PFIZER INC-2015260638

PATIENT
  Age: 6 Decade
  Sex: Male

DRUGS (1)
  1. CELEBREX [Suspect]
     Active Substance: CELECOXIB
     Route: 048

REACTIONS (3)
  - Skin ulcer [Unknown]
  - Hypersensitivity [Unknown]
  - Dermatitis exfoliative [Unknown]
